FAERS Safety Report 15769769 (Version 1)
Quarter: 2018Q4

REPORT INFORMATION
  Report Type: Spontaneous
  Country: SA (occurrence: SA)
  Receive Date: 20181228
  Receipt Date: 20181228
  Transmission Date: 20190205
  Serious: Yes (Other)
  Sender: FDA-Public Use
  Company Number: SA-ABBVIE-18K-259-2606662-00

PATIENT
  Age: 55 Year
  Sex: Male

DRUGS (1)
  1. HUMIRA [Suspect]
     Active Substance: ADALIMUMAB
     Indication: PRODUCT USED FOR UNKNOWN INDICATION
     Route: 058

REACTIONS (6)
  - Pancytopenia [Unknown]
  - Delirium [Unknown]
  - Asthenia [Unknown]
  - Dysphagia [Unknown]
  - Seizure [Unknown]
  - Aphasia [Unknown]
